FAERS Safety Report 16355661 (Version 2)
Quarter: 2019Q2

REPORT INFORMATION
  Report Type: Spontaneous
  Country: BR (occurrence: BR)
  Receive Date: 20190525
  Receipt Date: 20190527
  Transmission Date: 20190711
  Serious: Yes (Death, Other)
  Sender: FDA-Public Use
  Company Number: PHHY2019BR121226

PATIENT
  Sex: Female

DRUGS (2)
  1. IMATINIB. [Suspect]
     Active Substance: IMATINIB MESYLATE
     Indication: CHRONIC MYELOID LEUKAEMIA
     Route: 048
  2. NILOTINIB [Suspect]
     Active Substance: NILOTINIB
     Indication: CHRONIC MYELOID LEUKAEMIA
     Route: 048

REACTIONS (3)
  - Chronic myeloid leukaemia [Fatal]
  - Therapeutic response decreased [Unknown]
  - Necrosis [Unknown]
